FAERS Safety Report 9625815 (Version 2)
Quarter: 2013Q4

REPORT INFORMATION
  Report Type: Spontaneous
  Country: FR (occurrence: FR)
  Receive Date: 20131016
  Receipt Date: 20131016
  Transmission Date: 20140711
  Serious: Yes (Hospitalization)
  Sender: FDA-Public Use
  Company Number: FR-PFIZER INC-2013277712

PATIENT
  Age: 75 Year
  Sex: Male
  Weight: 92.4 kg

DRUGS (10)
  1. TAZOCILLINE [Suspect]
     Indication: ENDOCARDITIS
     Dosage: 4 G, 4X/DAY
     Route: 041
     Dates: start: 20130709, end: 201307
  2. VANCOMYCIN MYLAN [Suspect]
     Indication: ENDOCARDITIS
     Dosage: UNK
     Route: 042
     Dates: start: 20130709, end: 20130716
  3. GENTAMICIN ^PANPHARMA^ [Suspect]
     Indication: ENDOCARDITIS
     Dosage: UNK
     Dates: start: 20130709, end: 20130726
  4. RIFADINE [Suspect]
     Indication: ENDOCARDITIS
     Dosage: UNK
     Route: 048
     Dates: start: 20130709
  5. PREVISCAN [Concomitant]
     Dosage: 20 MG, 1X/DAY
  6. ATENOLOL [Concomitant]
     Dosage: 50 MG, 1X/DAY
  7. KALEORID [Concomitant]
     Dosage: 600 MG, 1X/DAY
  8. LASILIX [Concomitant]
     Dosage: 1 DF, 1X/DAY
  9. AMLOR [Concomitant]
     Dosage: 5 MG, 1X/DAY
  10. GLUCOPHAGE [Concomitant]
     Dosage: 850 MG, 3X/DAY

REACTIONS (3)
  - Renal failure acute [Recovering/Resolving]
  - Hepatocellular injury [Recovered/Resolved]
  - Metabolic acidosis [Recovered/Resolved]
